FAERS Safety Report 8816449 (Version 1)
Quarter: 2012Q4

REPORT INFORMATION
  Report Type: Spontaneous
  Country: US (occurrence: None)
  Receive Date: 20120928
  Receipt Date: 20120928
  Transmission Date: 20130627
  Serious: Yes (Hospitalization)
  Sender: FDA-Public Use
  Company Number: None

PATIENT
  Age: 82 Year
  Sex: Female
  Weight: 110.8 kg

DRUGS (1)
  1. CARVEDILOL [Suspect]
     Indication: CORONARY ARTERY DISEASE/HYPERTENSION
     Dosage: 1.5 tablets BID po -9.375mg-
     Route: 048

REACTIONS (5)
  - Dehydration [None]
  - Dermatitis psoriasiform [None]
  - Hypophagia [None]
  - No therapeutic response [None]
  - Activities of daily living impaired [None]
